FAERS Safety Report 7939967-3 (Version None)
Quarter: 2011Q4

REPORT INFORMATION
  Report Type: 
  Country: None (occurrence: None)
  Receive Date: 20111125
  Receipt Date: 20111118
  Transmission Date: 20120403
  Serious: Yes (Other)
  Sender: FDA-Public Use
  Company Number: PHEH2011US009858

PATIENT
  Age: 73 Year
  Sex: Female

DRUGS (5)
  1. LISINOPRIL [Concomitant]
  2. TOPROL-XL [Concomitant]
  3. CALCIUM [Concomitant]
  4. RECLAST [Suspect]
     Dosage: UNK UKN, EVERY YEAR
     Route: 042
  5. VITAMIN D [Concomitant]

REACTIONS (7)
  - SPEECH DISORDER [None]
  - INFLUENZA [None]
  - PAIN [None]
  - SWELLING [None]
  - SWOLLEN TONGUE [None]
  - TONGUE DISORDER [None]
  - HEADACHE [None]
